FAERS Safety Report 20219171 (Version 2)
Quarter: 2022Q1

REPORT INFORMATION
  Report Type: Spontaneous
  Country: CH (occurrence: CH)
  Receive Date: 20211222
  Receipt Date: 20220128
  Transmission Date: 20220423
  Serious: Yes (Other)
  Sender: FDA-Public Use
  Company Number: None

PATIENT
  Age: 93 Year
  Sex: Male

DRUGS (17)
  1. PREGABALIN [Interacting]
     Active Substance: PREGABALIN
     Indication: Epilepsy
     Dosage: 50 MG, 1X/DAY (MORNING, 0.1-1%)
     Route: 048
  2. PREGABALIN [Interacting]
     Active Substance: PREGABALIN
     Dosage: 100 MG, 1X/DAY (EVENING, 0.1-1%
     Route: 048
  3. AMLODIPINE BESYLATE [Interacting]
     Active Substance: AMLODIPINE BESYLATE
     Dosage: 5 MG, 1X/DAY, PO
     Route: 048
     Dates: end: 20211124
  4. LISINOPRIL [Interacting]
     Active Substance: LISINOPRIL
     Dosage: 10 MG, 1X/DAY
     Route: 048
     Dates: end: 20211124
  5. DUTASTERIDE\TAMSULOSIN [Interacting]
     Active Substance: DUTASTERIDE\TAMSULOSIN
     Dosage: 1 DF, 1X/DAY
     Route: 048
     Dates: end: 20211124
  6. TRAZODONE HYDROCHLORIDE [Interacting]
     Active Substance: TRAZODONE HYDROCHLORIDE
     Dosage: 50 MG, 1X/DAY
     Route: 048
  7. MESTINON [Interacting]
     Active Substance: PYRIDOSTIGMINE BROMIDE
     Dosage: 110 MG, 3X/DAY
     Route: 048
  8. MESTINON [Interacting]
     Active Substance: PYRIDOSTIGMINE BROMIDE
     Dosage: 70 MG, 1X/DAY
     Route: 048
  9. OXAZEPAM [Interacting]
     Active Substance: OXAZEPAM
     Dosage: 15 MG, 1X/DAY
     Route: 048
     Dates: start: 20211123, end: 20211124
  10. ATORVASTATIN [Interacting]
     Active Substance: ATORVASTATIN
     Dosage: 10 MG, 1X/DAY
     Route: 048
     Dates: end: 20211126
  11. DOXYCYCLINE HYDROCHLORIDE [Interacting]
     Active Substance: DOXYCYCLINE HYDROCHLORIDE
     Dosage: 100 MG, 2X/DAY
     Route: 048
     Dates: start: 20211123, end: 20211129
  12. AMOXICILLIN\CLAVULANIC ACID [Concomitant]
     Active Substance: AMOXICILLIN\CLAVULANIC ACID
     Dosage: UNK
     Route: 042
  13. MIRABEGRON [Concomitant]
     Active Substance: MIRABEGRON
     Dosage: UNK
     Route: 048
  14. CALCIUM\CHOLECALCIFEROL [Concomitant]
     Active Substance: CALCIUM\CHOLECALCIFEROL
     Dosage: UNK
     Route: 048
  15. SODIUM PICOSULFATE [Concomitant]
     Active Substance: SODIUM PICOSULFATE
     Dosage: UNK
     Route: 048
  16. ALBUTEROL [Concomitant]
     Active Substance: ALBUTEROL
     Dosage: UNK
     Route: 055
  17. ACETAMINOPHEN [Concomitant]
     Active Substance: ACETAMINOPHEN
     Dosage: UNK, AS NEEDED

REACTIONS (4)
  - Hypotension [Recovered/Resolved]
  - Disturbance in attention [Recovered/Resolved]
  - Diarrhoea [Unknown]
  - Drug interaction [Unknown]

NARRATIVE: CASE EVENT DATE: 20211123
